FAERS Safety Report 9723028 (Version 1)
Quarter: 2013Q4

REPORT INFORMATION
  Report Type: Spontaneous
  Country: NL (occurrence: None)
  Receive Date: 20131126
  Receipt Date: 20131126
  Transmission Date: 20140711
  Serious: Yes (Hospitalization)
  Sender: FDA-Public Use
  Company Number: 2013AP009966

PATIENT
  Age: 50 Year
  Sex: Female

DRUGS (3)
  1. HYDROCHLOROTHIAZIDE (HYDROCHLOROTHIAZIDE) [Suspect]
  2. CALCIUM CARBONATE [Suspect]
     Dosage: 6000 MG; QD; UNK, PO
     Route: 048
  3. DIHYDROTACHYSTEROL [Suspect]
     Dosage: 0.4 MG; UNKNOWN; UNK; QD

REACTIONS (4)
  - Hypercalcaemia [None]
  - Renal failure acute [None]
  - Gastroenteritis [None]
  - Blood alkaline phosphatase increased [None]
